FAERS Safety Report 20975810 (Version 1)
Quarter: 2022Q2

REPORT INFORMATION
  Report Type: Spontaneous
  Country: US (occurrence: US)
  Receive Date: 20220617
  Receipt Date: 20220617
  Transmission Date: 20220721
  Serious: No
  Sender: FDA-Public Use
  Company Number: US-BRISTOL-MYERS SQUIBB COMPANY-2022-054554

PATIENT
  Age: 70 Year
  Sex: Male

DRUGS (5)
  1. REVLIMID [Suspect]
     Active Substance: LENALIDOMIDE
     Indication: Neoplasm malignant
     Dosage: 7 DAYS OFF
     Route: 048
     Dates: start: 20220421
  2. ASPIRIN [Concomitant]
     Active Substance: ASPIRIN
  3. COENZYME Q10 [Concomitant]
     Active Substance: DIETARY SUPPLEMENT\UBIDECARENONE
  4. IBUPROFEN [Concomitant]
     Active Substance: IBUPROFEN
  5. MAGNESIUM [MAGNESIUM HYDROXIDE] [Concomitant]

REACTIONS (1)
  - Rash [Unknown]
